FAERS Safety Report 4962784-3 (Version None)
Quarter: 2006Q2

REPORT INFORMATION
  Report Type: 
  Country: None (occurrence: None)
  Receive Date: 20060404
  Receipt Date: 20060330
  Transmission Date: 20061013
  Serious: Yes (Disabling)
  Sender: FDA-Public Use
  Company Number: DE-MERCK-0603DEU00212

PATIENT
  Sex: Female

DRUGS (2)
  1. VIOXX [Suspect]
     Indication: INTERVERTEBRAL DISC PROTRUSION
     Route: 048
     Dates: start: 20000101
  2. VIOXX [Suspect]
     Route: 048

REACTIONS (3)
  - ARRHYTHMIA [None]
  - HEADACHE [None]
  - HYPERTENSION [None]
